FAERS Safety Report 13994674 (Version 1)
Quarter: 2017Q3

REPORT INFORMATION
  Report Type: Report from Study
  Country: None (occurrence: BR)
  Receive Date: 20170921
  Receipt Date: 20170921
  Transmission Date: 20171128
  Serious: Yes (Hospitalization)
  Sender: FDA-Public Use
  Company Number: BR-ABBVIE-16K-020-1763358-00

PATIENT
  Sex: Female
  Weight: 90 kg

DRUGS (5)
  1. ORENCIA [Concomitant]
     Active Substance: ABATACEPT
     Indication: RHEUMATOID ARTHRITIS
     Dates: start: 201708
  2. ORENCIA [Concomitant]
     Active Substance: ABATACEPT
     Indication: DIABETES MELLITUS
  3. LEFLUNOMIDE. [Suspect]
     Active Substance: LEFLUNOMIDE
     Indication: PRODUCT USED FOR UNKNOWN INDICATION
     Route: 065
  4. ORENCIA [Concomitant]
     Active Substance: ABATACEPT
     Indication: HYPERSENSITIVITY
  5. HUMIRA [Suspect]
     Active Substance: ADALIMUMAB
     Indication: RHEUMATOID ARTHRITIS
     Route: 058
     Dates: start: 20151102, end: 201706

REACTIONS (7)
  - Palate injury [Unknown]
  - Hypersensitivity [Unknown]
  - Erythema [Unknown]
  - Inflammation [Unknown]
  - Oral allergy syndrome [Unknown]
  - Tooth infection [Unknown]
  - Infection [Unknown]
